FAERS Safety Report 8603675-6 (Version None)
Quarter: 2012Q3

REPORT INFORMATION
  Report Type: 
  Country: None (occurrence: None)
  Receive Date: 20120817
  Receipt Date: 20120808
  Transmission Date: 20120928
  Serious: No
  Sender: FDA-Public Use
  Company Number: US-ASTRAZENECA-2012SE55936

PATIENT
  Age: 56 Year
  Sex: Female
  Weight: 58.1 kg

DRUGS (6)
  1. KLONOPIN [Concomitant]
  2. OXYCONTIN [Concomitant]
     Indication: PAIN
  3. SAVELLA [Concomitant]
  4. SYNTHROID [Concomitant]
  5. CRESTOR [Suspect]
     Indication: BLOOD CHOLESTEROL ABNORMAL
     Route: 048
  6. CATAFLAM [Concomitant]

REACTIONS (2)
  - BLOOD CHOLESTEROL INCREASED [None]
  - DRUG DOSE OMISSION [None]
